FAERS Safety Report 7799094-5 (Version None)
Quarter: 2011Q4

REPORT INFORMATION
  Report Type: 
  Country: None (occurrence: None)
  Receive Date: 20111006
  Receipt Date: 20110929
  Transmission Date: 20120403
  Serious: Yes (Other)
  Sender: FDA-Public Use
  Company Number: SE-PFIZER INC-2011234662

PATIENT
  Sex: Female

DRUGS (14)
  1. SUCCINYLCHOLINE CHLORIDE [Suspect]
     Dosage: 100 MG, SINGLE
     Route: 064
     Dates: start: 20110713, end: 20110713
  2. KALCIPOS-D [Concomitant]
     Dosage: 500 MG
     Route: 064
  3. FOLIC ACID [Concomitant]
     Dosage: 5 MG
     Route: 064
  4. TRANDATE [Concomitant]
     Dosage: UNK
  5. LYRICA [Suspect]
     Dosage: 350 MG DAILY
     Route: 064
  6. ZOLPIDEM TARTRATE [Suspect]
     Dosage: 10 MG DAILY
     Route: 064
  7. NITRAZEPAM [Suspect]
     Dosage: 5 MG, 1X/DAY
     Route: 064
  8. BACLOFEN [Suspect]
     Dosage: 10 MG DAILY
     Route: 064
  9. VENLAFAXINE [Suspect]
     Dosage: 75 MG DAILY
     Route: 064
  10. PENTOTHAL [Suspect]
     Dosage: 500 MG, SINGLE
     Route: 064
     Dates: start: 20110713, end: 20110713
  11. CILAXORAL [Concomitant]
     Dosage: UNK
  12. PROPAVAN [Suspect]
     Dosage: 25 MG, 1X/DAY
     Route: 064
  13. TEGRETOL [Suspect]
     Indication: EPILEPSY
     Dosage: 1800 MG DAILY
     Route: 064
  14. ALFENTANIL [Suspect]
     Dosage: 0.5 MG
     Route: 064
     Dates: start: 20110713, end: 20110713

REACTIONS (3)
  - RESPIRATORY DEPRESSION [None]
  - FATIGUE [None]
  - MATERNAL EXPOSURE DURING PREGNANCY [None]
